FAERS Safety Report 9738552 (Version 3)
Quarter: 2014Q1

REPORT INFORMATION
  Report Type: Report from Study
  Country: CA (occurrence: CA)
  Receive Date: 20131209
  Receipt Date: 20140324
  Transmission Date: 20141002
  Serious: Yes (Other)
  Sender: FDA-Public Use
  Company Number: CA-ROCHE-1316063

PATIENT
  Age: 42 Year
  Sex: Female
  Weight: 64.47 kg

DRUGS (16)
  1. RITUXAN [Suspect]
     Indication: RHEUMATOID ARTHRITIS
     Dosage: FREQUENCY: DAY 1 + 15
     Route: 042
     Dates: start: 20100720
  2. RITUXAN [Suspect]
     Route: 042
     Dates: start: 20140224
  3. DIPHENHYDRAMINE HCL [Concomitant]
     Indication: PREMEDICATION
     Route: 048
     Dates: start: 20100720
  4. ACETAMINOPHEN [Concomitant]
     Indication: PREMEDICATION
     Route: 048
     Dates: start: 20110707
  5. NOVOCOX [Concomitant]
  6. NEXIUM [Concomitant]
  7. NORVASC [Concomitant]
     Indication: BLOOD PRESSURE
  8. SYNTHROID [Concomitant]
  9. MS CONTIN [Concomitant]
  10. FOLIC ACID [Concomitant]
  11. METHOTREXATE [Concomitant]
  12. APPLE CIDER VINEGAR [Concomitant]
  13. VITAMIN B12 [Concomitant]
     Dosage: FREQUENCY: EVERY MONTH
     Route: 065
  14. METHYLPREDNISOLONE [Concomitant]
     Route: 048
     Dates: start: 20110707
  15. METHOTREXATE [Concomitant]
  16. HYDROXYCHLOROQUINE [Concomitant]

REACTIONS (6)
  - Renal disorder [Unknown]
  - Blood urine present [Unknown]
  - Weight decreased [Unknown]
  - Rheumatoid arthritis [Unknown]
  - Nausea [Unknown]
  - Gastrointestinal disorder [Unknown]
